FAERS Safety Report 4984955-2 (Version None)
Quarter: 2006Q2

REPORT INFORMATION
  Report Type: 
  Country: None (occurrence: None)
  Receive Date: 20060427
  Receipt Date: 20060116
  Transmission Date: 20061013
  Serious: Yes (Life-Threatening, Hospitalization, Other)
  Sender: FDA-Public Use
  Company Number: CA-AMGEN-US165243

PATIENT
  Sex: Female
  Weight: 74.5 kg

DRUGS (24)
  1. ENBREL [Suspect]
     Indication: RHEUMATOID ARTHRITIS
     Route: 058
     Dates: start: 20050628, end: 20060105
  2. TYLENOL (CAPLET) [Concomitant]
     Route: 065
  3. BISOPROLOL [Concomitant]
     Route: 065
  4. COLACE [Concomitant]
     Route: 065
  5. MONOCOR [Concomitant]
     Route: 065
  6. ATORVASTATIN CALCIUM [Concomitant]
     Route: 065
  7. METFORMIN [Concomitant]
     Route: 065
  8. SYNTHROID [Concomitant]
     Route: 065
  9. FERROUS GLUCONATE [Concomitant]
     Route: 065
  10. ASCORBIC ACID [Concomitant]
     Route: 065
  11. ASPIRIN [Concomitant]
     Route: 065
  12. OXYCONTIN [Concomitant]
     Route: 065
  13. DICLOFENAC SODIUM [Concomitant]
     Route: 065
  14. HYDROCHLOROTHIAZIDE [Concomitant]
     Route: 065
  15. ALDACTONE [Concomitant]
     Route: 065
  16. LASIX [Concomitant]
     Route: 065
  17. GLICLAZIDE [Concomitant]
     Route: 065
  18. PANTOPRAZOLE SODIUM [Concomitant]
     Route: 065
  19. DILTIAZEM [Concomitant]
     Route: 065
  20. COVERSYL [Concomitant]
     Route: 065
  21. PREDNISONE [Concomitant]
  22. CELEBREX [Concomitant]
  23. COUMADIN [Concomitant]
  24. METOCLOPRAMIDE [Concomitant]

REACTIONS (18)
  - ASTHENIA [None]
  - ATRIAL FIBRILLATION [None]
  - BRADYCARDIA [None]
  - CARDIAC ARREST [None]
  - CONDITION AGGRAVATED [None]
  - HYPERKALAEMIA [None]
  - HYPERTENSION [None]
  - HYPOVOLAEMIA [None]
  - ISCHAEMIC HEPATITIS [None]
  - LOSS OF CONSCIOUSNESS [None]
  - MYDRIASIS [None]
  - MYOCARDIAL INFARCTION [None]
  - PARKINSON'S DISEASE [None]
  - PNEUMONIA [None]
  - PUPIL FIXED [None]
  - RENAL FAILURE ACUTE [None]
  - RHEUMATOID ARTHRITIS [None]
  - URINARY TRACT INFECTION [None]
